FAERS Safety Report 13101575 (Version 1)
Quarter: 2017Q1

REPORT INFORMATION
  Report Type: Spontaneous
  Country: US (occurrence: US)
  Receive Date: 20170110
  Receipt Date: 20170110
  Transmission Date: 20170428
  Serious: No
  Sender: FDA-Public Use
  Company Number: None

PATIENT
  Age: 69 Year
  Sex: Male

DRUGS (11)
  1. NITROSTAT [Concomitant]
     Active Substance: NITROGLYCERIN
  2. ONDANSETRON [Concomitant]
     Active Substance: ONDANSETRON
  3. ZELBORAF [Suspect]
     Active Substance: VEMURAFENIB
     Indication: MALIGNANT MELANOMA
     Route: 048
     Dates: start: 20161230, end: 20170104
  4. AMIODARONE [Concomitant]
     Active Substance: AMIODARONE
  5. HYDROMORPHINE [Concomitant]
     Active Substance: HYDROMORPHONE
  6. METOPROLOL. [Concomitant]
     Active Substance: METOPROLOL
  7. SUCRALFATE. [Concomitant]
     Active Substance: SUCRALFATE
  8. PREDNISONE. [Concomitant]
     Active Substance: PREDNISONE
  9. FERROUS SULFATE. [Concomitant]
     Active Substance: FERROUS SULFATE
  10. PROMETHAZINE [Concomitant]
     Active Substance: PROMETHAZINE\PROMETHAZINE HYDROCHLORIDE
  11. MORPHINE [Concomitant]
     Active Substance: MORPHINE

REACTIONS (4)
  - Confusional state [None]
  - Gastric disorder [None]
  - Eating disorder [None]
  - Pain [None]

NARRATIVE: CASE EVENT DATE: 201612
